FAERS Safety Report 23334329 (Version 8)
Quarter: 2024Q3

REPORT INFORMATION
  Report Type: Spontaneous
  Country: US (occurrence: US)
  Receive Date: 20231223
  Receipt Date: 20240731
  Transmission Date: 20241017
  Serious: No
  Sender: NOVARTIS
  Company Number: US-002147023-NVSC2023US272811

PATIENT
  Sex: Female

DRUGS (2)
  1. MEKINIST [Suspect]
     Active Substance: TRAMETINIB DIMETHYL SULFOXIDE
     Indication: Brain neoplasm malignant
     Dosage: 25 ML (EVERY 28 DAYS BY MOUTH)
     Route: 048
     Dates: start: 202311
  2. EVEROLIMUS [Suspect]
     Active Substance: EVEROLIMUS
     Indication: Product used for unknown indication
     Dosage: UNK
     Route: 065

REACTIONS (7)
  - Stomatitis [Unknown]
  - Paronychia [Unknown]
  - Rash [Unknown]
  - Chills [Unknown]
  - Nausea [Unknown]
  - Viral infection [Unknown]
  - Product use in unapproved indication [Unknown]
